FAERS Safety Report 14201730 (Version 1)
Quarter: 2017Q4

REPORT INFORMATION
  Report Type: Spontaneous
  Country: US (occurrence: US)
  Receive Date: 20171117
  Receipt Date: 20171117
  Transmission Date: 20180321
  Serious: No
  Sender: FDA-Public Use
  Company Number: US-BAYER-2017-221373

PATIENT
  Age: 23 Year
  Sex: Female

DRUGS (1)
  1. SKYLA [Suspect]
     Active Substance: LEVONORGESTREL
     Indication: CONTRACEPTION
     Dosage: 14 MCG/24HR, CONT
     Route: 015
     Dates: start: 201708

REACTIONS (5)
  - Sneezing [Unknown]
  - Nasal congestion [Unknown]
  - Pruritus [Unknown]
  - Hypersensitivity [Unknown]
  - Insomnia [Unknown]

NARRATIVE: CASE EVENT DATE: 201710
